FAERS Safety Report 5706309-3 (Version None)
Quarter: 2008Q2

REPORT INFORMATION
  Report Type: 
  Country: None (occurrence: None)
  Receive Date: 20080411
  Receipt Date: 20080326
  Transmission Date: 20081010
  Serious: No
  Sender: FDA-Public Use
  Company Number: 002#2#2008-00144

PATIENT
  Age: 35 Year
  Sex: Male
  Weight: 86.1834 kg

DRUGS (5)
  1. NEUPRO [Suspect]
     Indication: PARKINSON'S DISEASE
     Dosage: 2 MG/24H, 1 IN 1 D, TRANSDERMAL, 4 MG/24H, 1 IN 1 D, TRANSDERMAL,  4 MG/24H, 1 IN 1 D, TRANSDERMAL
     Route: 062
     Dates: start: 20080201, end: 20080101
  2. NEUPRO [Suspect]
     Indication: PARKINSON'S DISEASE
     Dosage: 2 MG/24H, 1 IN 1 D, TRANSDERMAL, 4 MG/24H, 1 IN 1 D, TRANSDERMAL,  4 MG/24H, 1 IN 1 D, TRANSDERMAL
     Route: 062
     Dates: start: 20080101, end: 20080325
  3. NEUPRO [Suspect]
     Indication: PARKINSON'S DISEASE
     Dosage: 2 MG/24H, 1 IN 1 D, TRANSDERMAL, 4 MG/24H, 1 IN 1 D, TRANSDERMAL,  4 MG/24H, 1 IN 1 D, TRANSDERMAL
     Route: 062
     Dates: start: 20080326
  4. DIOVAN [Concomitant]
  5. AZILECT [Concomitant]

REACTIONS (4)
  - DIZZINESS [None]
  - HEADACHE [None]
  - INSOMNIA [None]
  - NAUSEA [None]
